FAERS Safety Report 17243301 (Version 1)
Quarter: 2019Q4

REPORT INFORMATION
  Report Type: Spontaneous
  Country: US (occurrence: US)
  Receive Date: 20191212
  Receipt Date: 20191212
  Transmission Date: 20200122
  Serious: No
  Sender: FDA-Public Use
  Company Number: None

PATIENT
  Sex: Female

DRUGS (1)
  1. FORTEO [Suspect]
     Active Substance: TERIPARATIDE
     Indication: ILL-DEFINED DISORDER
     Route: 058
     Dates: start: 20191206

REACTIONS (4)
  - Pain [None]
  - Swelling face [None]
  - Chest discomfort [None]
  - Headache [None]
